FAERS Safety Report 6253351-2 (Version None)
Quarter: 2009Q3

REPORT INFORMATION
  Report Type: 
  Country: None (occurrence: None)
  Receive Date: 20090701
  Receipt Date: 20090626
  Transmission Date: 20100115
  Serious: Yes (Life-Threatening)
  Sender: FDA-Public Use
  Company Number: PHEH2009US05173

PATIENT
  Age: 71 Year
  Sex: Female

DRUGS (6)
  1. DIOVAN [Suspect]
     Dosage: 80 MG, UNK
     Route: 048
     Dates: start: 20090201
  2. FEMARA [Suspect]
  3. SOTALOL HYDROCHLORIDE [Concomitant]
  4. COUMADIN [Concomitant]
  5. GLUCOSAMINE [Concomitant]
  6. VITAMIN B-12 [Concomitant]

REACTIONS (4)
  - ASTHENIA [None]
  - BLOOD PRESSURE DECREASED [None]
  - HAEMORRHAGE [None]
  - LACERATION [None]
